FAERS Safety Report 6461925-9 (Version None)
Quarter: 2009Q4

REPORT INFORMATION
  Report Type: 
  Country: None (occurrence: None)
  Receive Date: 20091130
  Receipt Date: 20091119
  Transmission Date: 20100525
  Serious: Yes (Hospitalization)
  Sender: FDA-Public Use
  Company Number: GB-ASTRAZENECA-2009GB00530

PATIENT
  Age: 43 Year
  Sex: Female
  Weight: 163.5 kg

DRUGS (25)
  1. LISINOPRIL [Suspect]
     Route: 048
     Dates: end: 20081013
  2. IRBESARTAN [Suspect]
     Route: 048
     Dates: end: 20081013
  3. ACOMPLIA [Suspect]
     Indication: OBESITY
     Route: 048
     Dates: start: 20070629, end: 20081013
  4. SPIRONOLACTONE [Suspect]
     Route: 048
     Dates: end: 20081013
  5. ATENOLOL [Concomitant]
     Route: 048
  6. OMEPRAZOLE [Concomitant]
     Route: 048
  7. PARACETAMOL [Concomitant]
     Indication: MUSCLE SPASMS
     Route: 048
  8. LIDOCAINE [Concomitant]
     Route: 061
  9. ASPIRIN [Concomitant]
     Indication: CARDIOVASCULAR EVENT PROPHYLAXIS
     Route: 048
  10. ASPIRIN [Concomitant]
     Indication: CARDIAC DISORDER
     Route: 048
  11. ATORVASTATIN [Concomitant]
     Route: 048
  12. BISOPROLOL [Concomitant]
     Route: 065
  13. CODEINE [Concomitant]
     Indication: MUSCLE SPASMS
     Route: 048
  14. DILTIAZEM [Concomitant]
     Route: 065
  15. FUROSEMIDE [Concomitant]
     Route: 048
  16. GLYCERYL TRINITRATE [Concomitant]
     Indication: CARDIAC DISORDER
     Route: 060
  17. ISOSORBIDE MONONITRATE [Concomitant]
     Dosage: 60 MG X 1.5/DAY
     Route: 048
  18. ISPAGHULA HUSK [Concomitant]
     Route: 048
  19. NITRAZEPAM [Concomitant]
     Dosage: 5 MG 1 TOTAL
     Route: 048
  20. OMACOR [Concomitant]
     Route: 048
  21. QUININE SULFATE [Concomitant]
     Dosage: 300 MG  1TOTAL
     Route: 048
  22. TRIMETHOPRIM [Concomitant]
     Indication: URINARY TRACT INFECTION
     Dosage: 100 MG 1 TOTAL
     Route: 048
  23. VESICARE [Concomitant]
     Indication: CYSTITIS
     Route: 065
  24. LOVAZA [Concomitant]
     Route: 048
  25. SOLIFENACIN [Concomitant]
     Route: 048

REACTIONS (17)
  - ANAL HAEMORRHAGE [None]
  - ATRIAL FIBRILLATION [None]
  - BACK PAIN [None]
  - CONSTIPATION [None]
  - DEHYDRATION [None]
  - DYSPEPSIA [None]
  - FEAR OF EATING [None]
  - GASTROOESOPHAGEAL REFLUX DISEASE [None]
  - HYPERTENSION [None]
  - NAUSEA [None]
  - OEDEMA [None]
  - OLIGURIA [None]
  - PYREXIA [None]
  - RENAL FAILURE [None]
  - RENAL PAIN [None]
  - VOMITING [None]
  - WEIGHT INCREASED [None]
